FAERS Safety Report 8204162-X (Version None)
Quarter: 2012Q1

REPORT INFORMATION
  Report Type: 
  Country: None (occurrence: None)
  Receive Date: 20120309
  Receipt Date: 20120302
  Transmission Date: 20120608
  Serious: Yes (Disabling, Other)
  Sender: FDA-Public Use
  Company Number: 2010MA002491

PATIENT
  Sex: Female
  Weight: 90.7194 kg

DRUGS (22)
  1. METOCLOPRAMIDE HYDROCHLORIDE [Suspect]
     Indication: DIABETIC GASTROPARESIS
     Dosage: 10 MG;TID; PO
     Route: 048
     Dates: start: 20011128, end: 20080205
  2. AVANDIA [Concomitant]
  3. PROMETHAZINE [Concomitant]
  4. LORAZEPAM [Concomitant]
  5. NITROFURANTOIN [Concomitant]
  6. ONDANSETRON [Concomitant]
  7. HUMALOG [Concomitant]
  8. PHENAZOPYRIDINE HCL TAB [Concomitant]
  9. CITRATE OF MAGNESIA [Concomitant]
  10. METFORMIN HCL [Concomitant]
  11. DOCUSATE SODIUM [Concomitant]
  12. LANTUS [Concomitant]
  13. PREVACID [Concomitant]
  14. PROAIR HFA [Concomitant]
  15. CEPHALEXIN [Concomitant]
  16. LISINOPRIL [Concomitant]
  17. ALBUTEROL [Concomitant]
  18. AMITRIPTYLINE HCL [Concomitant]
  19. HUMULIN R [Concomitant]
  20. LANTUS [Concomitant]
  21. BISACODYL [Concomitant]
  22. LEVEMIR [Concomitant]

REACTIONS (13)
  - MUSCLE SPASMS [None]
  - DIABETES MELLITUS INADEQUATE CONTROL [None]
  - ASTHMA [None]
  - MYOFASCIAL PAIN SYNDROME [None]
  - INJURY [None]
  - REPETITIVE STRAIN INJURY [None]
  - TREATMENT NONCOMPLIANCE [None]
  - ECONOMIC PROBLEM [None]
  - BRONCHITIS [None]
  - TARDIVE DYSKINESIA [None]
  - HYPERTENSION [None]
  - EMOTIONAL DISTRESS [None]
  - DYSURIA [None]
